FAERS Safety Report 23089426 (Version 1)
Quarter: 2023Q4

REPORT INFORMATION
  Report Type: Spontaneous
  Country: IT (occurrence: IT)
  Receive Date: 20231020
  Receipt Date: 20231020
  Transmission Date: 20240110
  Serious: Yes (Other)
  Sender: FDA-Public Use
  Company Number: IT-ROCHE-3406495

PATIENT
  Age: 59 Year
  Sex: Male
  Weight: 66 kg

DRUGS (24)
  1. BENDAMUSTINE [Suspect]
     Active Substance: BENDAMUSTINE
     Indication: Mantle cell lymphoma
     Dosage: DAY1
     Dates: start: 20230220, end: 20230407
  2. IBRUTINIB [Suspect]
     Active Substance: IBRUTINIB
     Indication: Mantle cell lymphoma
     Dates: start: 20220920, end: 20230126
  3. PREDNISONE [Suspect]
     Active Substance: PREDNISONE
     Indication: Mantle cell lymphoma
     Dosage: LAST CYCLE ON 30/MAR/2022
     Dates: start: 20211202, end: 20220606
  4. CYCLOPHOSPHAMIDE [Suspect]
     Active Substance: CYCLOPHOSPHAMIDE
     Indication: Mantle cell lymphoma
     Dosage: LAST CYCLE ON 30/MAR/2022
     Dates: start: 20211202, end: 20220606
  5. RITUXIMAB [Suspect]
     Active Substance: RITUXIMAB
     Indication: Mantle cell lymphoma
     Dosage: LAST CYCLE ON 30/MAR/2022
     Dates: start: 20211202, end: 20220606
  6. RITUXIMAB [Suspect]
     Active Substance: RITUXIMAB
     Dosage: DAY 1
     Dates: start: 20230220, end: 20230407
  7. FOTEMUSTINE [Suspect]
     Active Substance: FOTEMUSTINE
     Indication: Mantle cell lymphoma
     Dates: start: 20220606
  8. MELPHALAN [Suspect]
     Active Substance: MELPHALAN
     Indication: Mantle cell lymphoma
     Dates: start: 20220606
  9. DOXORUBICIN [Suspect]
     Active Substance: DOXORUBICIN
     Indication: Mantle cell lymphoma
     Dosage: LAST CYCLE ON 30/MAR/2022
     Dates: start: 20211202, end: 20220606
  10. VINCRISTINE [Suspect]
     Active Substance: VINCRISTINE
     Indication: Mantle cell lymphoma
     Dosage: LAST CYCLE ON 30/MAR/2022
     Dates: start: 20211202, end: 20220606
  11. TECARTUS [Suspect]
     Active Substance: BREXUCABTAGENE AUTOLEUCEL
     Indication: Mantle cell lymphoma
     Dates: start: 20230531
  12. DEXAMETHASONE [Suspect]
     Active Substance: DEXAMETHASONE
     Indication: Mantle cell lymphoma
     Dosage: LAST CYCLE ON 30/MAR/2022
     Dates: start: 20211202, end: 20220606
  13. OXALIPLATIN [Suspect]
     Active Substance: OXALIPLATIN
     Indication: Mantle cell lymphoma
     Dosage: LAST CYCLE ON 30/MAR/2022
     Dates: start: 20211202, end: 20220606
  14. ETOPOSIDE [Suspect]
     Active Substance: ETOPOSIDE
     Indication: Mantle cell lymphoma
     Dates: start: 20220606
  15. CYTARABINE [Suspect]
     Active Substance: CYTARABINE
     Indication: Mantle cell lymphoma
     Dosage: ON DAY1, DAY2, DAY 3
     Dates: start: 20230220, end: 20230407
  16. CYTARABINE [Suspect]
     Active Substance: CYTARABINE
     Dosage: LAST CYCLE ON 30/MAR/2022
     Dates: start: 20211202, end: 20220606
  17. CYTARABINE [Suspect]
     Active Substance: CYTARABINE
     Dates: start: 20220606
  18. BACTRIM [Concomitant]
     Active Substance: SULFAMETHOXAZOLE\TRIMETHOPRIM
     Indication: Product used for unknown indication
  19. DEURSIL [Concomitant]
     Active Substance: URSODIOL
     Indication: Product used for unknown indication
  20. ACYCLOVIR [Concomitant]
     Active Substance: ACYCLOVIR
     Indication: Product used for unknown indication
  21. BISOPROLOL [Concomitant]
     Active Substance: BISOPROLOL\BISOPROLOL FUMARATE
     Indication: Product used for unknown indication
  22. KEPPRA [Concomitant]
     Active Substance: LEVETIRACETAM
     Indication: Product used for unknown indication
  23. ERYTHROPOIETIN [Concomitant]
     Active Substance: ERYTHROPOIETIN
     Indication: Product used for unknown indication
  24. PREGABALIN [Concomitant]
     Active Substance: PREGABALIN
     Indication: Product used for unknown indication

REACTIONS (2)
  - Therapy non-responder [Unknown]
  - Off label use [Unknown]
